FAERS Safety Report 8821118 (Version 1)
Quarter: 2012Q4

REPORT INFORMATION
  Report Type: 
  Country: US (occurrence: US)
  Receive Date: 20121002
  Receipt Date: 20121002
  Transmission Date: 20130627
  Serious: No
  Sender: FDA-Public Use
  Company Number: US-B.I. PHARMACEUTICALS,INC./RIDGEFIELD-2012-BP-23548BP

PATIENT
  Age: 62 Year
  Sex: Female
  Weight: 166 kg

DRUGS (8)
  1. SPIRIVA [Suspect]
     Indication: BRONCHITIS CHRONIC
     Dosage: 18 mcg
     Route: 055
     Dates: start: 20120925
  2. SPIRIVA [Suspect]
     Indication: ASTHMA
  3. AMLODIPINE [Concomitant]
     Indication: HYPERTENSION
     Dosage: 5 mg
     Route: 048
     Dates: start: 201205
  4. GLYBURIDE [Concomitant]
     Indication: GLUCOSE TOLERANCE IMPAIRED
     Dosage: 5 mg
     Route: 048
     Dates: start: 201205
  5. LISINOPRIL [Concomitant]
     Indication: HYPERTENSION
     Dosage: 40 mg
     Route: 048
     Dates: start: 2009
  6. OXYBUTYNIN CHLORIDE [Concomitant]
     Indication: URINARY INCONTINENCE
     Dosage: 10 mg
     Route: 048
     Dates: start: 2010
  7. LASIX [Concomitant]
     Indication: FLUID RETENTION
     Dosage: 40 mg
     Route: 048
     Dates: start: 1973
  8. ESTRADIOL [Concomitant]
     Indication: HORMONE REPLACEMENT THERAPY
     Dosage: 2 mg
     Route: 048
     Dates: start: 1990

REACTIONS (2)
  - Throat tightness [Recovered/Resolved]
  - Middle insomnia [Unknown]
